FAERS Safety Report 13785417 (Version 1)
Quarter: 2017Q3

REPORT INFORMATION
  Report Type: Spontaneous
  Country: US (occurrence: US)
  Receive Date: 20170725
  Receipt Date: 20170725
  Transmission Date: 20171127
  Serious: No
  Sender: FDA-Public Use
  Company Number: US-UNITED THERAPEUTICS-UNT-2017-006947

PATIENT
  Sex: Female

DRUGS (3)
  1. REMODULIN [Suspect]
     Active Substance: TREPROSTINIL
     Indication: PULMONARY ARTERIAL HYPERTENSION
     Dosage: 0.0158 ?G/KG, CONTINUING
     Route: 058
     Dates: start: 20170424, end: 20170501
  2. REMODULIN [Suspect]
     Active Substance: TREPROSTINIL
     Dosage: 0.0133 ?G/KG, CONTINUING
     Route: 058
     Dates: start: 20170506
  3. REMODULIN [Suspect]
     Active Substance: TREPROSTINIL
     Dosage: 0.0145 ?G/KG, CONTINUING
     Route: 058

REACTIONS (2)
  - Pain in extremity [Recovering/Resolving]
  - Pain in jaw [Recovering/Resolving]

NARRATIVE: CASE EVENT DATE: 20170424
